FAERS Safety Report 13635914 (Version 1)
Quarter: 2017Q2

REPORT INFORMATION
  Report Type: Spontaneous
  Country: US (occurrence: US)
  Receive Date: 20170531
  Receipt Date: 20170531
  Transmission Date: 20170830
  Serious: No
  Sender: FDA-Public Use
  Company Number: US-ASTELLAS-1754137

PATIENT
  Age: 66 Year
  Sex: Female

DRUGS (7)
  1. TARCEVA [Suspect]
     Active Substance: ERLOTINIB HYDROCHLORIDE
     Indication: TRACHEAL CANCER
     Route: 048
     Dates: start: 201205
  2. DEXAMETHASON [Concomitant]
     Active Substance: DEXAMETHASONE
  3. ONDANSETRON [Concomitant]
     Active Substance: ONDANSETRON
  4. HYDROMORPHONE [Concomitant]
     Active Substance: HYDROMORPHONE
  5. TARCEVA [Suspect]
     Active Substance: ERLOTINIB HYDROCHLORIDE
     Dosage: TWICE DAILY
     Route: 048
     Dates: start: 201205
  6. DIAZEPAM. [Concomitant]
     Active Substance: DIAZEPAM
     Route: 065
  7. ZOLPIDEM [Concomitant]
     Active Substance: ZOLPIDEM\ZOLPIDEM TARTRATE

REACTIONS (4)
  - Alopecia [Not Recovered/Not Resolved]
  - Nausea [Not Recovered/Not Resolved]
  - Rash [Not Recovered/Not Resolved]
  - Fatigue [Not Recovered/Not Resolved]

NARRATIVE: CASE EVENT DATE: 201205
